FAERS Safety Report 18139118 (Version 15)
Quarter: 2023Q4

REPORT INFORMATION
  Report Type: Report from Study
  Country: AR (occurrence: AR)
  Receive Date: 20200812
  Receipt Date: 20231208
  Transmission Date: 20240109
  Serious: Yes (Hospitalization, Other)
  Sender: FDA-Public Use
  Company Number: NVSC2020AR221978

PATIENT
  Age: 47 Year
  Sex: Male
  Weight: 120 kg

DRUGS (2)
  1. ILARIS [Suspect]
     Active Substance: CANAKINUMAB
     Indication: Muckle-Wells syndrome
     Dosage: 150 MG, QMO
     Route: 058
     Dates: start: 20200406
  2. ILARIS [Suspect]
     Active Substance: CANAKINUMAB
     Indication: Cryopyrin associated periodic syndrome

REACTIONS (16)
  - Hypoacusis [Not Recovered/Not Resolved]
  - Arthropathy [Not Recovered/Not Resolved]
  - Rash [Not Recovered/Not Resolved]
  - Muckle-Wells syndrome [Unknown]
  - Localised infection [Recovered/Resolved]
  - Thrombosis [Not Recovered/Not Resolved]
  - Seizure [Unknown]
  - Weight increased [Unknown]
  - Syndactyly [Unknown]
  - Pyrexia [Unknown]
  - Fatigue [Unknown]
  - Pruritus [Unknown]
  - Self esteem decreased [Unknown]
  - Arthralgia [Unknown]
  - Hypertension [Unknown]
  - Gait disturbance [Unknown]

NARRATIVE: CASE EVENT DATE: 20200501
